FAERS Safety Report 9907987 (Version 1)
Quarter: 2014Q1

REPORT INFORMATION
  Report Type: Spontaneous
  Country: AU (occurrence: AU)
  Receive Date: 20140219
  Receipt Date: 20140219
  Transmission Date: 20141002
  Serious: Yes (Other)
  Sender: FDA-Public Use
  Company Number: AU-SUN PHARMACEUTICAL INDUSTRIES LTD-2014SUN00317

PATIENT
  Age: 75 Year
  Sex: Female

DRUGS (7)
  1. GEMCITABINE [Suspect]
     Indication: ADENOCARCINOMA PANCREAS
     Dosage: TOTAL DOSE- 31860 MG
     Route: 065
     Dates: start: 201103, end: 20111010
  2. ATENOLOL [Concomitant]
  3. FRUSEMIDE [Concomitant]
  4. MELOXICAM [Concomitant]
  5. DIGOXIN [Concomitant]
  6. ASPIRIN [Concomitant]
  7. PANCREATIC ENZYMES [Concomitant]

REACTIONS (1)
  - Thrombotic microangiopathy [Recovering/Resolving]
